FAERS Safety Report 7361623-3 (Version None)
Quarter: 2011Q1

REPORT INFORMATION
  Report Type: 
  Country: None (occurrence: None)
  Receive Date: 20110318
  Receipt Date: 20110314
  Transmission Date: 20110831
  Serious: Yes (Other)
  Sender: FDA-Public Use
  Company Number: US-PFIZER INC-2011056514

PATIENT
  Sex: Female

DRUGS (6)
  1. INSULIN [Concomitant]
  2. LIPITOR [Suspect]
     Dosage: 80 MG, UNK
  3. ACETYLSALICYLIC ACID [Concomitant]
  4. ATENOLOL [Concomitant]
  5. ALEVE [Concomitant]
  6. ALTACE [Concomitant]

REACTIONS (8)
  - CARDIAC OPERATION [None]
  - CORONARY ARTERY BYPASS [None]
  - VITAMIN D DEFICIENCY [None]
  - HYPERSENSITIVITY [None]
  - MUSCLE SPASMS [None]
  - PAIN IN EXTREMITY [None]
  - CEREBROVASCULAR ACCIDENT [None]
  - STENT PLACEMENT [None]
